FAERS Safety Report 7415989-6 (Version None)
Quarter: 2011Q2

REPORT INFORMATION
  Report Type: 
  Country: None (occurrence: None)
  Receive Date: 20110406
  Receipt Date: 20110330
  Transmission Date: 20111010
  Serious: Yes (Hospitalization)
  Sender: FDA-Public Use
  Company Number: 014041

PATIENT
  Sex: Male
  Weight: 66 kg

DRUGS (9)
  1. SULFASALAZINE [Concomitant]
  2. DICLOFENAC [Concomitant]
  3. CYANOCOBALAMIN [Concomitant]
  4. BISOPROLOL [Concomitant]
  5. CERTOLIZUMAB PEGOL (CERTOLIZUMAB PEGOL) [Suspect]
     Indication: RHEUMATOID ARTHRITIS
     Dosage: (400 MG 1X/2 WEEKS, DOUBLE BLIND PHASE, NBR OF DOSES: 3 SUBCUTANEOUS)
     Route: 058
     Dates: start: 20091119, end: 20091221
  6. METEX [Concomitant]
  7. ALENDRONATE SODIUM [Concomitant]
  8. SIMVASTATIN [Concomitant]
  9. PREDNI H [Concomitant]

REACTIONS (10)
  - EMPYEMA [None]
  - EMPHYSEMA [None]
  - HAEMOGLOBIN DECREASED [None]
  - DIASTOLIC DYSFUNCTION [None]
  - LEFT ATRIAL DILATATION [None]
  - BLOOD LACTATE DEHYDROGENASE INCREASED [None]
  - NEISSERIA TEST POSITIVE [None]
  - RESPIRATORY FAILURE [None]
  - LUNG INFILTRATION [None]
  - BRONCHOPULMONARY ASPERGILLOSIS [None]
